FAERS Safety Report 13008727 (Version 1)
Quarter: 2016Q4

REPORT INFORMATION
  Report Type: Report from Study
  Country: US (occurrence: US)
  Receive Date: 20161208
  Receipt Date: 20161208
  Transmission Date: 20170207
  Serious: No
  Sender: FDA-Public Use
  Company Number: US-AMGEN-USASL2016171840

PATIENT
  Age: 80 Year
  Sex: Female

DRUGS (1)
  1. ENBREL [Suspect]
     Active Substance: ETANERCEPT
     Indication: RHEUMATOID ARTHRITIS
     Dosage: 50 MG, QWK
     Route: 065
     Dates: end: 201611

REACTIONS (5)
  - Impaired healing [Unknown]
  - Wound [Unknown]
  - Laceration [Unknown]
  - Rash erythematous [Unknown]
  - Injury [Unknown]

NARRATIVE: CASE EVENT DATE: 20161118
